FAERS Safety Report 10758173 (Version 2)
Quarter: 2015Q1

REPORT INFORMATION
  Report Type: Spontaneous
  Country: US (occurrence: US)
  Receive Date: 20150203
  Receipt Date: 20150330
  Transmission Date: 20150721
  Serious: Yes (Other)
  Sender: FDA-Public Use
  Company Number: US-BRACCO-011682

PATIENT
  Age: 55 Year
  Sex: Male
  Weight: 89 kg

DRUGS (1)
  1. MULTIHANCE [Suspect]
     Active Substance: GADOBENATE DIMEGLUMINE
     Indication: NUCLEAR MAGNETIC RESONANCE IMAGING BRAIN
     Route: 042
     Dates: start: 20150121, end: 20150121

REACTIONS (8)
  - Anxiety [Unknown]
  - Depressed level of consciousness [Unknown]
  - Sneezing [Unknown]
  - Faecal incontinence [Unknown]
  - Hyperhidrosis [Unknown]
  - Vomiting [Unknown]
  - Restlessness [Unknown]
  - Loss of consciousness [Recovering/Resolving]

NARRATIVE: CASE EVENT DATE: 20150121
